FAERS Safety Report 13660495 (Version 1)
Quarter: 2017Q2

REPORT INFORMATION
  Report Type: Spontaneous
  Country: US (occurrence: US)
  Receive Date: 20170616
  Receipt Date: 20170616
  Transmission Date: 20170830
  Serious: No
  Sender: FDA-Public Use
  Company Number: US-009507513-1706USA007348

PATIENT
  Sex: Male

DRUGS (2)
  1. FUROSEMIDE. [Suspect]
     Active Substance: FUROSEMIDE
     Indication: DIZZINESS
  2. FUROSEMIDE. [Suspect]
     Active Substance: FUROSEMIDE
     Indication: CLUSTER HEADACHE
     Dosage: UNK
     Route: 048

REACTIONS (3)
  - Back pain [Unknown]
  - Drug ineffective [Unknown]
  - Insomnia [Unknown]
